FAERS Safety Report 5670662-X (Version None)
Quarter: 2008Q1

REPORT INFORMATION
  Report Type: 
  Country: None (occurrence: None)
  Receive Date: 20080314
  Receipt Date: 20080314
  Transmission Date: 20080703
  Serious: Yes (Other)
  Sender: FDA-Public Use
  Company Number: None

PATIENT
  Age: 57 Year
  Sex: Female
  Weight: 95.2554 kg

DRUGS (1)
  1. CLINDAMYCIN 300 MG RANBXY [Suspect]
     Indication: ORAL INFECTION
     Dosage: 300 MG EVERY 6 HOURS PO
     Route: 048
     Dates: start: 20080303, end: 20080315

REACTIONS (1)
  - PSEUDOMEMBRANOUS COLITIS [None]
